FAERS Safety Report 7918673-5 (Version None)
Quarter: 2011Q4

REPORT INFORMATION
  Report Type: 
  Country: None (occurrence: None)
  Receive Date: 20111116
  Receipt Date: 20111110
  Transmission Date: 20120403
  Serious: Yes (Hospitalization)
  Sender: FDA-Public Use
  Company Number: CHPA2011US015892

PATIENT
  Age: 77 Year
  Sex: Female

DRUGS (2)
  1. BENEFIBER W/ WHEAT DEXTRIN [Suspect]
     Indication: NUTRITIONAL SUPPORT
     Dosage: 6 TSP, A DAY
     Route: 048
  2. BENEFIBER W/ WHEAT DEXTRIN [Suspect]
     Dosage: 3 TSP, A DAY
     Route: 048

REACTIONS (4)
  - HERNIA [None]
  - PYREXIA [None]
  - UNDERDOSE [None]
  - DIARRHOEA [None]
